APPROVED DRUG PRODUCT: VERAPAMIL HYDROCHLORIDE
Active Ingredient: VERAPAMIL HYDROCHLORIDE
Strength: 40MG
Dosage Form/Route: TABLET;ORAL
Application: A071881 | Product #002 | TE Code: AB
Applicant: HERITAGE PHARMACEUTICALS INC DBA AVET PHARMACEUTICALS INC
Approved: Oct 14, 2015 | RLD: No | RS: No | Type: RX